FAERS Safety Report 8770056 (Version 1)
Quarter: 2012Q4

REPORT INFORMATION
  Report Type: 
  Country: US (occurrence: US)
  Receive Date: 20120906
  Receipt Date: 20120906
  Transmission Date: 20130627
  Serious: No
  Sender: FDA-Public Use
  Company Number: US-BAYER-2012-082364

PATIENT
  Sex: Female

DRUGS (1)
  1. DESONATE GEL [Suspect]
     Dosage: UNK
     Route: 061
     Dates: start: 201208

REACTIONS (2)
  - Pruritus [None]
  - Erythema [None]
